FAERS Safety Report 10581272 (Version 2)
Quarter: 2015Q2

REPORT INFORMATION
  Report Type: Spontaneous
  Country: US (occurrence: US)
  Receive Date: 20141113
  Receipt Date: 20150507
  Transmission Date: 20150821
  Serious: Yes (Death, Hospitalization, Other)
  Sender: FDA-Public Use
  Company Number: US-009507513-1411USA005293

PATIENT
  Sex: Female
  Weight: 56.69 kg

DRUGS (2)
  1. JANUVIA [Suspect]
     Active Substance: SITAGLIPTIN PHOSPHATE
     Indication: TYPE 2 DIABETES MELLITUS
     Dosage: 50 MG, QD
     Route: 048
     Dates: start: 20080206, end: 20100506
  2. JANUVIA [Suspect]
     Active Substance: SITAGLIPTIN PHOSPHATE
     Dosage: 100 MG, QD
     Route: 048
     Dates: start: 20100506, end: 201112

REACTIONS (16)
  - Hyperbilirubinaemia [Unknown]
  - Pancreatitis chronic [Not Recovered/Not Resolved]
  - Dysphagia [Recovered/Resolved]
  - Malnutrition [Unknown]
  - Metastases to lymph nodes [Unknown]
  - Death [Fatal]
  - Chronic obstructive pulmonary disease [Not Recovered/Not Resolved]
  - Deep vein thrombosis [Unknown]
  - Adenocarcinoma pancreas [Unknown]
  - Encephalopathy [Unknown]
  - Pancreaticoduodenectomy [Unknown]
  - Pancreatectomy [Unknown]
  - Hypertension [Not Recovered/Not Resolved]
  - Ammonia increased [Unknown]
  - Chronic kidney disease [Not Recovered/Not Resolved]
  - Gallbladder disorder [Not Recovered/Not Resolved]

NARRATIVE: CASE EVENT DATE: 201112
